FAERS Safety Report 14056740 (Version 1)
Quarter: 2017Q4

REPORT INFORMATION
  Report Type: Spontaneous
  Country: RU (occurrence: RU)
  Receive Date: 20171006
  Receipt Date: 20171006
  Transmission Date: 20180321
  Serious: Yes (Death)
  Sender: FDA-Public Use
  Company Number: RU-ASTRAZENECA-2017SE60833

PATIENT
  Age: 68 Year
  Sex: Male
  Weight: 98 kg

DRUGS (5)
  1. BRILINTA [Suspect]
     Active Substance: TICAGRELOR
     Indication: MYOCARDIAL INFARCTION
     Route: 048
     Dates: start: 20170317, end: 20170424
  2. THROMBO ASS [Concomitant]
     Active Substance: ASPIRIN
  3. VEROSPIRON [Concomitant]
     Active Substance: SPIRONOLACTONE
  4. BETALOC ZOK [Concomitant]
     Active Substance: METOPROLOL SUCCINATE
  5. BRILINTA [Suspect]
     Active Substance: TICAGRELOR
     Indication: MYOCARDIAL INFARCTION
     Route: 048
     Dates: start: 201705

REACTIONS (5)
  - Dermatitis allergic [Recovered/Resolved]
  - Product use issue [Unknown]
  - Rales [Fatal]
  - Dyspnoea [Unknown]
  - Off label use [Unknown]
